FAERS Safety Report 8027306-1 (Version None)
Quarter: 2012Q1

REPORT INFORMATION
  Report Type: 
  Country: None (occurrence: None)
  Receive Date: 20120105
  Receipt Date: 20120105
  Transmission Date: 20120608
  Serious: No
  Sender: FDA-Public Use
  Company Number: None

PATIENT
  Sex: Female
  Weight: 67.3 kg

DRUGS (1)
  1. ACTHAR [Suspect]
     Indication: MULTIPLE SCLEROSIS
     Dosage: 80UNITS DAILY X 5 DAYS SQ
     Route: 058
     Dates: start: 20111223, end: 20111227

REACTIONS (2)
  - DYSPNOEA [None]
  - GENERALISED OEDEMA [None]
